FAERS Safety Report 4771403-0 (Version None)
Quarter: 2005Q3

REPORT INFORMATION
  Report Type: 
  Country: None (occurrence: None)
  Receive Date: 20050914
  Receipt Date: 20050831
  Transmission Date: 20060218
  Serious: Yes (Other)
  Sender: FDA-Public Use
  Company Number: US-2005-001874

PATIENT
  Age: 50 Year
  Sex: Female
  Weight: 92.1 kg

DRUGS (20)
  1. BETASERON [Suspect]
     Indication: RELAPSING-REMITTING MULTIPLE SCLEROSIS
     Dosage: 8 MIU, EVERY 2D, SUBCUTANEOUS
     Route: 058
     Dates: start: 20020301
  2. SOLU-MEDROL [Suspect]
     Indication: MULTIPLE SCLEROSIS
     Dosage: INTRAVENOUS
     Route: 042
     Dates: start: 20050106, end: 20050106
  3. PRILOSEC [Concomitant]
  4. ZESTRIL [Concomitant]
  5. XANAX [Concomitant]
  6. MENEST [Concomitant]
  7. PROZAC [Concomitant]
  8. TYLENOL [Concomitant]
  9. AVANDAMET (METFORMIN HYDROCHLORIDE, ROSIGLITAZONE MALEATE) [Concomitant]
  10. ALTACE [Concomitant]
  11. ZYRTEC [Concomitant]
  12. PROVIGIL [Concomitant]
  13. VITAMIN B-12 [Concomitant]
  14. PROTONIX [Concomitant]
  15. ACTONEL [Concomitant]
  16. OSCAL [Concomitant]
  17. TAGAMET [Concomitant]
  18. ECOTRIN (ACETYLSALICYLIC ACID) [Concomitant]
  19. ESTRATAB [Concomitant]
  20. ORTHO-EST [Concomitant]

REACTIONS (11)
  - ANXIETY [None]
  - CYANOSIS [None]
  - DEPRESSION [None]
  - DIABETES MELLITUS NON-INSULIN-DEPENDENT [None]
  - FATIGUE [None]
  - HYPERGLYCAEMIA [None]
  - HYPOAESTHESIA [None]
  - INJECTION SITE ERYTHEMA [None]
  - MULTIPLE SCLEROSIS [None]
  - NO THERAPEUTIC RESPONSE [None]
  - PAIN IN EXTREMITY [None]
